FAERS Safety Report 8912427 (Version 1)
Quarter: 2012Q4

REPORT INFORMATION
  Report Type: 
  Country: US (occurrence: US)
  Receive Date: 20121116
  Receipt Date: 20121116
  Transmission Date: 20130627
  Serious: No
  Sender: FDA-Public Use
  Company Number: US-009507513-1211USA004750

PATIENT
  Age: 69 Year
  Sex: Female

DRUGS (2)
  1. SINGULAIR [Suspect]
     Indication: ASTHMA
     Dosage: 10 mg, qd
     Route: 048
     Dates: start: 200811
  2. SINGULAIR [Suspect]
     Indication: HYPERSENSITIVITY

REACTIONS (1)
  - Malaise [Recovered/Resolved]
